FAERS Safety Report 21949793 (Version 3)
Quarter: 2023Q1

REPORT INFORMATION
  Report Type: Report from Study
  Country: US (occurrence: US)
  Receive Date: 20230203
  Receipt Date: 20230327
  Transmission Date: 20230418
  Serious: Yes (Hospitalization, Other)
  Sender: FDA-Public Use
  Company Number: US-GILEAD-2023-0615190

PATIENT
  Sex: Male

DRUGS (2)
  1. AZTREONAM LYSINE [Suspect]
     Active Substance: AZTREONAM LYSINE
     Indication: Haemophilus infection
     Dosage: 75MG THREE TIMES DAILY 28 DAYS ON 28 DAYS OFF
     Route: 055
     Dates: start: 20161208
  2. AZTREONAM LYSINE [Suspect]
     Active Substance: AZTREONAM LYSINE
     Indication: Bronchiectasis
     Dosage: UNK
     Route: 065
     Dates: start: 20161207

REACTIONS (1)
  - Cardiac operation [Recovering/Resolving]
